FAERS Safety Report 9037563 (Version 2)
Quarter: 2013Q3

REPORT INFORMATION
  Report Type: Spontaneous
  Country: US (occurrence: US)
  Receive Date: 20130129
  Receipt Date: 20130708
  Transmission Date: 20140515
  Serious: No
  Sender: FDA-Public Use
  Company Number: US-009507513-1301USA008373

PATIENT
  Sex: Female
  Weight: 55.78 kg

DRUGS (2)
  1. DULERA [Suspect]
     Indication: ASTHMA
     Dosage: 200 MCG/5MCG - TWO PUFFS TWICE A DAY
     Route: 055
     Dates: start: 2011
  2. PROAIR HFA [Concomitant]

REACTIONS (4)
  - Cough [Unknown]
  - Wheezing [Unknown]
  - Drug dose omission [Unknown]
  - Expired drug administered [Unknown]
